FAERS Safety Report 16820232 (Version 1)
Quarter: 2019Q3

REPORT INFORMATION
  Report Type: Spontaneous
  Country: AU (occurrence: AU)
  Receive Date: 20190918
  Receipt Date: 20190918
  Transmission Date: 20191005
  Serious: Yes (Hospitalization)
  Sender: FDA-Public Use
  Company Number: AU-TEVA-2019-AU-1108502

PATIENT
  Age: 42 Year
  Sex: Female

DRUGS (3)
  1. DESVENLAFAXINE. [Suspect]
     Active Substance: DESVENLAFAXINE
     Indication: DEPRESSIVE SYMPTOM
     Route: 065
  2. DESVENLAFAXINE. [Suspect]
     Active Substance: DESVENLAFAXINE
     Route: 065
  3. DESVENLAFAXINE. [Suspect]
     Active Substance: DESVENLAFAXINE
     Dosage: OVERDOSE (AMOUNT INGESTED NOT STATED).
     Route: 065

REACTIONS (5)
  - Depersonalisation/derealisation disorder [Recovered/Resolved]
  - Confusional state [Recovered/Resolved]
  - Intentional overdose [Unknown]
  - Therapy partial responder [Unknown]
  - Derealisation [Recovered/Resolved]
